FAERS Safety Report 16753620 (Version 2)
Quarter: 2019Q3

REPORT INFORMATION
  Report Type: Report from Study
  Country: None (occurrence: SE)
  Receive Date: 20190829
  Receipt Date: 20190924
  Transmission Date: 20191005
  Serious: Yes (Hospitalization)
  Sender: FDA-Public Use
  Company Number: SE-ABBVIE-19K-150-2889333-00

PATIENT
  Age: 72 Year
  Sex: Male

DRUGS (2)
  1. DUODOPA [Suspect]
     Active Substance: CARBIDOPA\LEVODOPA
     Indication: PARKINSON^S DISEASE
     Route: 050
     Dates: start: 20160627, end: 201607
  2. DUODOPA [Suspect]
     Active Substance: CARBIDOPA\LEVODOPA
     Route: 050
     Dates: start: 20160712, end: 20190912

REACTIONS (9)
  - Stoma site infection [Not Recovered/Not Resolved]
  - Stoma site irritation [Unknown]
  - Embedded device [Recovered/Resolved]
  - Bacterial disease carrier [Not Recovered/Not Resolved]
  - Stoma site discharge [Unknown]
  - Medical device site abscess [Recovered/Resolved]
  - Stoma site reaction [Unknown]
  - Sepsis [Recovered/Resolved]
  - Stoma site erythema [Unknown]

NARRATIVE: CASE EVENT DATE: 201906
